FAERS Safety Report 9094389 (Version 1)
Quarter: 2013Q1

REPORT INFORMATION
  Report Type: Spontaneous
  Country: GB (occurrence: GB)
  Receive Date: 20130201
  Receipt Date: 20130201
  Transmission Date: 20140127
  Serious: Yes (Disabling)
  Sender: FDA-Public Use
  Company Number: GB-ELI_LILLY_AND_COMPANY-GB201301007550

PATIENT
  Sex: 0

DRUGS (1)
  1. HUMALOG LISPRO [Suspect]
     Dosage: UNK, UNKNOWN
     Route: 064

REACTIONS (1)
  - Foetal exposure during pregnancy [Recovered/Resolved]
